FAERS Safety Report 9514500 (Version 2)
Quarter: 2013Q4

REPORT INFORMATION
  Report Type: Spontaneous
  Country: US (occurrence: US)
  Receive Date: 20130911
  Receipt Date: 20131008
  Transmission Date: 20140711
  Serious: No
  Sender: FDA-Public Use
  Company Number: US-B.I. PHARMACEUTICALS,INC./RIDGEFIELD-2013-BI-26940BP

PATIENT
  Age: 84 Year
  Sex: Male
  Weight: 78.92 kg

DRUGS (8)
  1. SPIRIVA [Suspect]
     Indication: CHRONIC OBSTRUCTIVE PULMONARY DISEASE
     Dosage: 18 MG
     Route: 055
     Dates: start: 2012
  2. KCL [Concomitant]
     Indication: CARDIAC FAILURE CONGESTIVE
  3. FUROSEMIDE [Concomitant]
     Indication: CARDIAC FAILURE CONGESTIVE
  4. LOSARTAN [Concomitant]
     Indication: HYPERTENSION
  5. ISOSORBIDE MONONITRATE [Concomitant]
     Indication: CORONARY ARTERY DISEASE
  6. KEPPRA [Concomitant]
     Indication: CONVULSION
  7. GABAPENTIN [Concomitant]
     Indication: ARTHRALGIA
  8. LEVOTHYROXIN [Concomitant]
     Indication: HYPOTHYROIDISM

REACTIONS (3)
  - Dyspnoea [Not Recovered/Not Resolved]
  - Product quality issue [Not Recovered/Not Resolved]
  - Product quality issue [Not Recovered/Not Resolved]
